FAERS Safety Report 7444227-3 (Version None)
Quarter: 2011Q2

REPORT INFORMATION
  Report Type: 
  Country: None (occurrence: None)
  Receive Date: 20110429
  Receipt Date: 20101210
  Transmission Date: 20111010
  Serious: Yes (Hospitalization)
  Sender: FDA-Public Use
  Company Number: US-BAYER-201026570NA

PATIENT
  Age: 38 Year
  Sex: Female
  Weight: 107.94 kg

DRUGS (24)
  1. ALBUTEROL [Concomitant]
  2. ABILIFY [Concomitant]
  3. SYNTHROID [Concomitant]
  4. DONNATAL [Concomitant]
  5. OXYCODONE HCL EXTENDED-RELEASE [Concomitant]
  6. PROTONIX [Concomitant]
  7. COLACE [Concomitant]
  8. PHENERGAN [Concomitant]
  9. OXYCODONE HCL [Concomitant]
  10. PROVIGIL [Concomitant]
  11. YAZ [Suspect]
     Indication: PREMENSTRUAL SYNDROME
  12. IBUPROFEN (ADVIL) [Concomitant]
  13. TOFRANIL [Concomitant]
  14. FLEXERIL [Concomitant]
  15. YAZ [Suspect]
     Indication: CONTRACEPTION
     Route: 048
     Dates: start: 20060101, end: 20081001
  16. IMITREX [Concomitant]
  17. OXYCODONE HCL [Concomitant]
  18. YAZ [Suspect]
     Indication: ACNE
  19. CYCLOBENZAPRINE [Concomitant]
  20. INDERAL [Concomitant]
  21. KLONOPIN [Concomitant]
  22. DOXYCYCLINE [DOXYCYCLINE] [Concomitant]
  23. CELEXA [Concomitant]
  24. TRAZODONE HCL [Concomitant]

REACTIONS (8)
  - PULMONARY EMBOLISM [None]
  - DYSPNOEA [None]
  - PULMONARY INFARCTION [None]
  - STRESS [None]
  - PAIN IN EXTREMITY [None]
  - MUSCLE SPASMS [None]
  - ANXIETY [None]
  - PULMONARY THROMBOSIS [None]
